FAERS Safety Report 13622109 (Version 1)
Quarter: 2017Q2

REPORT INFORMATION
  Report Type: Spontaneous
  Country: US (occurrence: US)
  Receive Date: 20170607
  Receipt Date: 20170607
  Transmission Date: 20170830
  Serious: Yes (Hospitalization)
  Sender: FDA-Public Use
  Company Number: US-ROCHE-403684

PATIENT
  Age: 59 Year
  Sex: Male
  Weight: 69.1 kg

DRUGS (4)
  1. FUZEON [Suspect]
     Active Substance: ENFUVIRTIDE
     Indication: HIV INFECTION
     Dosage: ROUTE AS SQ.FREQUENCY:BID.
     Route: 050
  2. NOVIRASIN [Concomitant]
     Dosage: REPORTED AS NOVIR
     Route: 065
  3. EPZICOM [Concomitant]
     Active Substance: ABACAVIR SULFATE\LAMIVUDINE
     Route: 065
  4. LEXIVA [Concomitant]
     Active Substance: FOSAMPRENAVIR CALCIUM
     Route: 065

REACTIONS (4)
  - Product quality issue [Unknown]
  - Limb mass [Unknown]
  - Angina pectoris [Unknown]
  - Abdominal mass [Unknown]

NARRATIVE: CASE EVENT DATE: 20050311
